FAERS Safety Report 10140633 (Version 1)
Quarter: 2014Q2

REPORT INFORMATION
  Report Type: Spontaneous
  Country: GB (occurrence: GB)
  Receive Date: 20140429
  Receipt Date: 20140429
  Transmission Date: 20141212
  Serious: Yes (Other)
  Sender: FDA-Public Use
  Company Number: GB-VERTEX PHARMACEUTICALS INC-2014-002085

PATIENT
  Sex: 0

DRUGS (2)
  1. KALYDECO [Suspect]
     Indication: CYSTIC FIBROSIS
  2. CIPROFLOXACIN [Concomitant]

REACTIONS (1)
  - Neutropenia [Unknown]
